FAERS Safety Report 16011122 (Version 3)
Quarter: 2019Q1

REPORT INFORMATION
  Report Type: Report from Study
  Country: HR (occurrence: HR)
  Receive Date: 20190227
  Receipt Date: 20190313
  Transmission Date: 20190418
  Serious: Yes (Hospitalization)
  Sender: FDA-Public Use
  Company Number: HR-ROCHE-2265999

PATIENT
  Age: 44 Year
  Sex: Female
  Weight: 55 kg

DRUGS (64)
  1. OCRELIZUMAB. [Suspect]
     Active Substance: OCRELIZUMAB
     Dosage: OLE-WEEK 72
     Route: 042
     Dates: start: 20160223, end: 20160223
  2. LUPOCET [Concomitant]
     Dosage: WEEK 2
     Route: 065
     Dates: start: 20121128
  3. LUPOCET [Concomitant]
     Dosage: OLE -WEEK 24
     Route: 065
     Dates: start: 20150407
  4. LUPOCET [Concomitant]
     Dosage: OLE -WEEK 120
     Route: 065
     Dates: start: 20170124
  5. SYNOPEN [Concomitant]
     Active Substance: CHLOROPYRAMINE HYDROCHLORIDE
     Dosage: WEEK 2
     Route: 065
     Dates: start: 20121128
  6. SYNOPEN [Concomitant]
     Active Substance: CHLOROPYRAMINE HYDROCHLORIDE
     Dosage: WEEK 48
     Route: 065
     Dates: start: 20131021
  7. METHYLPREDNISOLONE. [Concomitant]
     Active Substance: METHYLPREDNISOLONE
     Dosage: OLE - WEEK 48
     Route: 065
     Dates: start: 20150916, end: 20150916
  8. OCRELIZUMAB. [Suspect]
     Active Substance: OCRELIZUMAB
     Indication: RELAPSING-REMITTING MULTIPLE SCLEROSIS
     Dosage: BASELINE (WEEK 1)?ON DAYS 1 AND 15 FOR THE FIRST DOSE AND AS A SINGLE INFUSION FOR ALL SUBSEQUENT IN
     Route: 042
     Dates: start: 20121114, end: 20121114
  9. OCRELIZUMAB. [Suspect]
     Active Substance: OCRELIZUMAB
     Dosage: OLE-WEEK 48
     Route: 042
     Dates: start: 20150916, end: 20150916
  10. OCRELIZUMAB. [Suspect]
     Active Substance: OCRELIZUMAB
     Dosage: OLE-WEEK 144
     Route: 042
     Dates: start: 20170713, end: 20170713
  11. LUPOCET [Concomitant]
     Indication: INFLUENZA
     Dosage: BASELINE WEEK 1, PRE-TREATMENT
     Route: 065
     Dates: start: 20121114
  12. SYNOPEN [Concomitant]
     Active Substance: CHLOROPYRAMINE HYDROCHLORIDE
     Dosage: OLE- WEEK 216?1 AMPULE
     Route: 065
     Dates: start: 20181129
  13. METHYLPREDNISOLONE. [Concomitant]
     Active Substance: METHYLPREDNISOLONE
     Dosage: WEEK 24
     Route: 065
     Dates: start: 20130502, end: 20130502
  14. METHYLPREDNISOLONE. [Concomitant]
     Active Substance: METHYLPREDNISOLONE
     Dosage: OLE - WEEK 2
     Route: 065
     Dates: start: 20141027, end: 20141027
  15. METHYLPREDNISOLONE. [Concomitant]
     Active Substance: METHYLPREDNISOLONE
     Dosage: OLE - WEEK 24
     Route: 065
     Dates: start: 20150407, end: 20150407
  16. METHYLPREDNISOLONE. [Concomitant]
     Active Substance: METHYLPREDNISOLONE
     Dosage: OLE - WEEK 192
     Route: 065
     Dates: start: 20180628, end: 20180628
  17. METHYLPREDNISOLONE. [Concomitant]
     Active Substance: METHYLPREDNISOLONE
     Dosage: OLE - WEEK 216
     Route: 065
     Dates: start: 20181129, end: 20181129
  18. OCRELIZUMAB. [Suspect]
     Active Substance: OCRELIZUMAB
     Dosage: WEEK 72
     Route: 042
     Dates: start: 20140401, end: 20140401
  19. PLACEBO [Suspect]
     Active Substance: UNSPECIFIED INGREDIENT
     Indication: RELAPSING-REMITTING MULTIPLE SCLEROSIS
     Route: 058
     Dates: start: 20140922, end: 20140922
  20. OCRELIZUMAB. [Suspect]
     Active Substance: OCRELIZUMAB
     Dosage: OLE-WEEK: 24
     Route: 042
     Dates: start: 20150407, end: 20150407
  21. METHYLPREDNISOLONE. [Concomitant]
     Active Substance: METHYLPREDNISOLONE
     Dosage: WEEK 72
     Route: 065
     Dates: start: 20140401, end: 20140401
  22. METHYLPREDNISOLONE. [Concomitant]
     Active Substance: METHYLPREDNISOLONE
     Dosage: OLE - WEEK 120
     Route: 065
     Dates: start: 20170124, end: 20170124
  23. METHYLPREDNISOLONE. [Concomitant]
     Active Substance: METHYLPREDNISOLONE
     Dosage: OLE - WEEK 144
     Route: 065
     Dates: start: 20170713, end: 20170713
  24. OCRELIZUMAB. [Suspect]
     Active Substance: OCRELIZUMAB
     Dosage: WEEK 24
     Route: 042
     Dates: start: 20130502, end: 20130502
  25. OCRELIZUMAB. [Suspect]
     Active Substance: OCRELIZUMAB
     Dosage: OLE-WEEK 120
     Route: 042
     Dates: start: 20170124, end: 20170124
  26. LUPOCET [Concomitant]
     Dosage: OLE -WEEK 192
     Route: 065
     Dates: start: 20180628
  27. SYNOPEN [Concomitant]
     Active Substance: CHLOROPYRAMINE HYDROCHLORIDE
     Dosage: WEEK 24
     Route: 065
     Dates: start: 20130502
  28. SYNOPEN [Concomitant]
     Active Substance: CHLOROPYRAMINE HYDROCHLORIDE
     Dosage: OLE- WEEK 24
     Route: 065
     Dates: start: 20150407
  29. METHYLPREDNISOLONE. [Concomitant]
     Active Substance: METHYLPREDNISOLONE
     Dosage: OLE - WEEK 0
     Route: 065
     Dates: start: 20141007, end: 20141007
  30. METHYLPREDNISOLONE. [Concomitant]
     Active Substance: METHYLPREDNISOLONE
     Dosage: OLE - WEEK 96
     Route: 065
     Dates: start: 20160804, end: 20160804
  31. OCRELIZUMAB. [Suspect]
     Active Substance: OCRELIZUMAB
     Dosage: WEEK 48
     Route: 042
     Dates: start: 20131021, end: 20131021
  32. OCRELIZUMAB. [Suspect]
     Active Substance: OCRELIZUMAB
     Dosage: OLE-WEEK 2
     Route: 042
     Dates: start: 20141027, end: 20141027
  33. OCRELIZUMAB. [Suspect]
     Active Substance: OCRELIZUMAB
     Dosage: OLE-WEEK 168
     Route: 042
     Dates: start: 20180118, end: 20180118
  34. LUPOCET [Concomitant]
     Dosage: WEEK 48
     Route: 065
     Dates: start: 20131021
  35. LUPOCET [Concomitant]
     Dosage: OLE -WEEK 48
     Route: 065
     Dates: start: 20150916
  36. SYNOPEN [Concomitant]
     Active Substance: CHLOROPYRAMINE HYDROCHLORIDE
     Dosage: OLE- WEEK 0?1 AMPULE
     Route: 065
     Dates: start: 20141007
  37. SYNOPEN [Concomitant]
     Active Substance: CHLOROPYRAMINE HYDROCHLORIDE
     Dosage: OLE- WEEK 48?1 AMPULE
     Route: 065
     Dates: start: 20150407
  38. SYNOPEN [Concomitant]
     Active Substance: CHLOROPYRAMINE HYDROCHLORIDE
     Dosage: OLE- WEEK 72?1 AMPULE
     Route: 065
     Dates: start: 20160223
  39. SYNOPEN [Concomitant]
     Active Substance: CHLOROPYRAMINE HYDROCHLORIDE
     Dosage: OLE- WEEK 120?1 AMPULE
     Route: 065
     Dates: start: 20170124
  40. SYNOPEN [Concomitant]
     Active Substance: CHLOROPYRAMINE HYDROCHLORIDE
     Dosage: OLE- WEEK 168
     Route: 065
     Dates: start: 20180118
  41. OCRELIZUMAB. [Suspect]
     Active Substance: OCRELIZUMAB
     Dosage: OLE-WEEK 96
     Route: 042
     Dates: start: 20160804, end: 20160804
  42. OCRELIZUMAB. [Suspect]
     Active Substance: OCRELIZUMAB
     Dosage: OLE-WEEK 192
     Route: 042
     Dates: start: 20180628, end: 20180628
  43. LUPOCET [Concomitant]
     Dosage: WEEK 72
     Route: 065
     Dates: start: 20140401
  44. LUPOCET [Concomitant]
     Dosage: OLE -WEEK 0
     Route: 065
     Dates: start: 20141007
  45. LUPOCET [Concomitant]
     Dosage: OLE -WEEK 96
     Route: 065
     Dates: start: 20160804
  46. SYNOPEN [Concomitant]
     Active Substance: CHLOROPYRAMINE HYDROCHLORIDE
     Dosage: AMPULE.?BASELINE WEEK 1, PRE TREATMENT
     Route: 065
     Dates: start: 20121114
  47. SYNOPEN [Concomitant]
     Active Substance: CHLOROPYRAMINE HYDROCHLORIDE
     Dosage: OLE- WEEK 192?1 AMPULE
     Route: 065
     Dates: start: 20180628
  48. METHYLPREDNISOLONE. [Concomitant]
     Active Substance: METHYLPREDNISOLONE
     Dosage: WEEK 48
     Route: 065
     Dates: start: 20131021, end: 20131021
  49. PARACETAMOL [Concomitant]
     Active Substance: ACETAMINOPHEN
     Dosage: OLE WEEL 2016
     Route: 065
     Dates: start: 20181129
  50. OCRELIZUMAB. [Suspect]
     Active Substance: OCRELIZUMAB
     Dosage: WEEK 2
     Route: 042
     Dates: start: 20121128, end: 20121128
  51. OCRELIZUMAB. [Suspect]
     Active Substance: OCRELIZUMAB
     Dosage: OLE-WEEK 216
     Route: 042
     Dates: start: 20181129, end: 20181129
  52. LUPOCET [Concomitant]
     Dosage: WEEK 24
     Route: 065
     Dates: start: 20130502
  53. SYNOPEN [Concomitant]
     Active Substance: CHLOROPYRAMINE HYDROCHLORIDE
     Dosage: OLE- WEEK 72?1 AMPULE
     Route: 065
     Dates: start: 20160804
  54. SYNOPEN [Concomitant]
     Active Substance: CHLOROPYRAMINE HYDROCHLORIDE
     Dosage: OLE- WEEK 144
     Route: 065
     Dates: start: 20170713
  55. METHYLPREDNISOLONE. [Concomitant]
     Active Substance: METHYLPREDNISOLONE
     Dosage: BASELINE WEEK 1
     Route: 065
     Dates: start: 20121114, end: 20121114
  56. METHYLPREDNISOLONE. [Concomitant]
     Active Substance: METHYLPREDNISOLONE
     Dosage: WEEK 2
     Route: 065
     Dates: start: 20121128, end: 20121128
  57. METHYLPREDNISOLONE. [Concomitant]
     Active Substance: METHYLPREDNISOLONE
     Dosage: OLE - WEEK 72
     Route: 065
     Dates: start: 20160223, end: 20160223
  58. METHYLPREDNISOLONE. [Concomitant]
     Active Substance: METHYLPREDNISOLONE
     Dosage: OLE - WEEK 168
     Route: 065
     Dates: start: 20180118, end: 20180118
  59. PLACEBO [Suspect]
     Active Substance: UNSPECIFIED INGREDIENT
     Route: 058
     Dates: start: 20141005, end: 20141005
  60. OCRELIZUMAB. [Suspect]
     Active Substance: OCRELIZUMAB
     Indication: RELAPSING-REMITTING MULTIPLE SCLEROSIS
     Dosage: OLE-WEEK 0?300 MG INFUSIONS ON DAYS 1 AND 15 FOR THE FIRST DOSE AND AS A SINGLE INFUSION OF 600 MG F
     Route: 042
     Dates: start: 20141007, end: 20141007
  61. LUPOCET [Concomitant]
     Dosage: OLE -WEEK 2
     Route: 065
     Dates: start: 20141027
  62. LUPOCET [Concomitant]
     Dosage: OLE -WEEK 72
     Route: 065
     Dates: start: 20160223
  63. SYNOPEN [Concomitant]
     Active Substance: CHLOROPYRAMINE HYDROCHLORIDE
     Dosage: WEEK 72
     Route: 065
     Dates: start: 20140401
  64. SYNOPEN [Concomitant]
     Active Substance: CHLOROPYRAMINE HYDROCHLORIDE
     Dosage: OLE- WEEK 2?1 AMPULE
     Route: 065
     Dates: start: 20141027

REACTIONS (1)
  - Pneumonia [Recovered/Resolved]

NARRATIVE: CASE EVENT DATE: 20190128
